FAERS Safety Report 6716378-X (Version None)
Quarter: 2010Q2

REPORT INFORMATION
  Report Type: 
  Country: None (occurrence: None)
  Receive Date: 20100507
  Receipt Date: 20100429
  Transmission Date: 20101027
  Serious: Yes (Other)
  Sender: FDA-Public Use
  Company Number: US-BRACCO-004404

PATIENT
  Age: 18 Year
  Sex: Male

DRUGS (2)
  1. BARIUM SULFATE [Suspect]
     Indication: X-RAY WITH CONTRAST UPPER GASTROINTESTINAL TRACT
     Route: 048
  2. BARIUM SULFATE [Suspect]
     Indication: PEPTIC ULCER
     Route: 048

REACTIONS (1)
  - APPENDICITIS [None]
